FAERS Safety Report 8874779 (Version 1)
Quarter: 2012Q4

REPORT INFORMATION
  Report Type: 
  Country: US (occurrence: US)
  Receive Date: 20121031
  Receipt Date: 20121031
  Transmission Date: 20130627
  Serious: No
  Sender: FDA-Public Use
  Company Number: US-009507513-1210USA002227

PATIENT
  Age: 53 None
  Sex: Female
  Weight: 72.56 kg

DRUGS (4)
  1. PEG-INTRON [Suspect]
     Indication: HEPATITIS C
     Dosage: UNK
     Dates: start: 20120423
  2. RIBAVIRIN [Suspect]
     Indication: HEPATITIS C
     Dosage: UNK
     Dates: start: 20120423
  3. RIBAVIRIN [Suspect]
     Dosage: Reduced to 1 in the am and 1 in the pm
  4. VICTRELIS [Suspect]
     Indication: HEPATITIS C
     Dosage: UNK
     Dates: start: 20120521

REACTIONS (16)
  - Red blood cell count decreased [Unknown]
  - Memory impairment [Unknown]
  - Asthenia [Unknown]
  - Dizziness [Unknown]
  - Dyspnoea [Unknown]
  - Vomiting [Unknown]
  - Nausea [Unknown]
  - Dry mouth [Unknown]
  - White blood cell count decreased [Unknown]
  - Alopecia [Unknown]
  - Constipation [Unknown]
  - Haematochezia [Unknown]
  - Pyrexia [Unknown]
  - Emotional disorder [Unknown]
  - Weight decreased [Unknown]
  - Insomnia [Unknown]
